FAERS Safety Report 8459861-1 (Version None)
Quarter: 2012Q2

REPORT INFORMATION
  Report Type: 
  Country: None (occurrence: None)
  Receive Date: 20120622
  Receipt Date: 20120618
  Transmission Date: 20120825
  Serious: Yes (Hospitalization, Other)
  Sender: FDA-Public Use
  Company Number: PHHY2010CA48349

PATIENT
  Sex: Female

DRUGS (2)
  1. SANDOSTATIN LAR [Suspect]
     Indication: NIEMANN-PICK DISEASE
     Dosage: 10 MG, EVERY 4 WEEKS
     Route: 030
     Dates: start: 20100721
  2. SANDOSTATIN LAR [Suspect]
     Dosage: 10 MG, QMO
     Route: 030

REACTIONS (8)
  - PROCEDURAL PAIN [None]
  - MALAISE [None]
  - BLOOD PRESSURE DECREASED [None]
  - ABDOMINAL PAIN [None]
  - SCREAMING [None]
  - LOSS OF CONSCIOUSNESS [None]
  - VOMITING [None]
  - SNORING [None]
